FAERS Safety Report 9014774 (Version 1)
Quarter: 2013Q1

REPORT INFORMATION
  Report Type: Spontaneous
  Country: US (occurrence: US)
  Receive Date: 20130115
  Receipt Date: 20130115
  Transmission Date: 20140127
  Serious: No
  Sender: FDA-Public Use
  Company Number: US-009507513-1301USA005737

PATIENT
  Age: 20 Year
  Sex: Male

DRUGS (1)
  1. PROPECIA [Suspect]
     Dosage: 1 MG, UNK
     Dates: start: 20120109, end: 20120110

REACTIONS (8)
  - Hypoaesthesia [Recovering/Resolving]
  - Eye disorder [Recovering/Resolving]
  - Mydriasis [Recovering/Resolving]
  - Vision blurred [Recovering/Resolving]
  - Groin pain [Not Recovered/Not Resolved]
  - Joint swelling [Recovering/Resolving]
  - Arthropathy [Recovering/Resolving]
  - Gait disturbance [Recovering/Resolving]
